FAERS Safety Report 17071191 (Version 2)
Quarter: 2020Q3

REPORT INFORMATION
  Report Type: Spontaneous
  Country: US (occurrence: US)
  Receive Date: 20191125
  Receipt Date: 20200814
  Transmission Date: 20201102
  Serious: Yes (Other)
  Sender: FDA-Public Use
  Company Number: US-MYLANLABS-2019M1112844

PATIENT
  Age: 58 Year
  Sex: Female

DRUGS (56)
  1. TRANSDERM SCOP [Concomitant]
     Active Substance: SCOPOLAMINE
     Dosage: UNK UNK, PRN
     Dates: start: 20180621, end: 20180621
  2. EPINEPHRINE. [Concomitant]
     Active Substance: EPINEPHRINE
     Dosage: UNK, ONCE/ 1 MILLIGRAM PER MILLILITRE
     Route: 030
  3. CULTURELLE [Concomitant]
     Active Substance: LACTOBACILLUS RHAMNOSUS
     Dosage: UNK UNK, QD (1 CAPSULE BY MOUTH)
  4. URIBEL [Concomitant]
     Active Substance: HYOSCYAMINE SULFATE\METHENAMINE\METHYLENE BLUE\PHENYL SALICYLATE\SODIUM PHOSPHATE, MONOBASIC, MONOHYDRATE
     Dosage: UNK, PRN (4 TIMES DAILY AS NEEDED)
     Route: 048
     Dates: start: 20171211
  5. ANCEF [Concomitant]
     Active Substance: CEFAZOLIN SODIUM
     Dosage: UNK
     Route: 042
     Dates: start: 20180621, end: 20180621
  6. EMLA [Concomitant]
     Active Substance: LIDOCAINE\PRILOCAINE
     Dosage: UNK
     Dates: start: 20180727, end: 20180727
  7. ELAVIL [Concomitant]
     Active Substance: AMITRIPTYLINE HYDROCHLORIDE
     Dosage: UNK, PM (1 TO 4 TABLETS BY MOUTH)
     Dates: start: 20180305, end: 20180803
  8. MARCAINE [Concomitant]
     Active Substance: BUPIVACAINE HYDROCHLORIDE
     Dosage: UNK, PRN
     Dates: start: 20180621, end: 20180621
  9. SUBLIMAZE [Concomitant]
     Active Substance: FENTANYL CITRATE
     Dosage: UNK, PRN
     Route: 042
     Dates: start: 20180621, end: 20180621
  10. DILAUDID [Concomitant]
     Active Substance: HYDROMORPHONE HYDROCHLORIDE
     Dosage: UNK, PRN
     Route: 042
     Dates: start: 20180621, end: 20180621
  11. HERCEPTIN [Concomitant]
     Active Substance: TRASTUZUMAB
     Dosage: UNK
  12. CYMBALTA [Concomitant]
     Active Substance: DULOXETINE HYDROCHLORIDE
     Dosage: UNK
     Dates: start: 20181009, end: 20181227
  13. FEMARA [Concomitant]
     Active Substance: LETROZOLE
     Dosage: UNK, QD
     Route: 048
     Dates: start: 20190115, end: 20191014
  14. NORCO [Concomitant]
     Active Substance: ACETAMINOPHEN\HYDROCODONE BITARTRATE
     Dosage: UNK
     Route: 048
     Dates: start: 20180621, end: 20180621
  15. ROBINUL [Concomitant]
     Active Substance: GLYCOPYRROLATE
     Dosage: UNK, PRN
     Route: 042
     Dates: start: 20180621, end: 20180621
  16. TRANDATE [Concomitant]
     Active Substance: LABETALOL HYDROCHLORIDE
     Dosage: 5 MILLIGRAM, PRN
     Dates: start: 20180621, end: 20180621
  17. COMPAZINE                          /00013302/ [Concomitant]
     Active Substance: PROCHLORPERAZINE EDISYLATE
     Dosage: U10 MILLIGRAM
     Route: 042
     Dates: start: 20180621, end: 20180621
  18. ALBUTEROL                          /00139501/ [Concomitant]
     Active Substance: ALBUTEROL
     Dosage: UNK, PRN
  19. KENALOG [Concomitant]
     Active Substance: TRIAMCINOLONE ACETONIDE
     Dosage: UNK
  20. DIPRIVAN [Concomitant]
     Active Substance: PROPOFOL
     Dosage: 150 MILLIGRAM
     Dates: start: 20180726
  21. AMITRIPTYLINE [Concomitant]
     Active Substance: AMITRIPTYLINE
     Indication: FIBROMYALGIA
     Dosage: UNK (25 MG UPTO 100MG AT BEDTIME)
  22. GLUCOPHAGE XR [Concomitant]
     Active Substance: METFORMIN HYDROCHLORIDE
     Dosage: UNK UNK, QD
  23. DIOVAN HCT [Concomitant]
     Active Substance: HYDROCHLOROTHIAZIDE\VALSARTAN
     Dosage: UNK UNK, QD
     Dates: start: 20180504, end: 20180717
  24. APRESOLINE HYDROCHLORIDE [Concomitant]
     Active Substance: HYDRALAZINE HYDROCHLORIDE
     Dosage: UNK, PRN
     Dates: start: 20180621, end: 20180621
  25. XYLOCAINE [Concomitant]
     Active Substance: LIDOCAINE HYDROCHLORIDE
     Dosage: UNK, PRN
     Route: 023
     Dates: start: 20180621, end: 20180621
  26. ATIVAN [Concomitant]
     Active Substance: LORAZEPAM
     Indication: ANXIETY
     Dosage: UNK UNK, PRN
     Route: 048
     Dates: start: 20180723, end: 20181009
  27. VALSARTAN. [Suspect]
     Active Substance: VALSARTAN
     Indication: PRODUCT USED FOR UNKNOWN INDICATION
     Dosage: UNK
  28. VALSARTAN AND HYDROCHLOROTHIAZIDE [Suspect]
     Active Substance: HYDROCHLOROTHIAZIDE\VALSARTAN
     Indication: HYPERTENSION
     Dosage: UNK (MACLEODS)
     Dates: start: 20090209, end: 201807
  29. SODIUM CHLORIDE. [Concomitant]
     Active Substance: SODIUM CHLORIDE
     Dosage: 10 MILLILITER, PRN
     Route: 042
     Dates: start: 20170213, end: 20190903
  30. MS CONTIN [Concomitant]
     Active Substance: MORPHINE SULFATE
     Dosage: UNK, ONCE
     Route: 048
     Dates: start: 20180621, end: 20180621
  31. ACETAMINOPHEN. [Concomitant]
     Active Substance: ACETAMINOPHEN
     Dosage: UNK, PRN
     Route: 048
     Dates: start: 20180621, end: 20180621
  32. NORCO [Concomitant]
     Active Substance: ACETAMINOPHEN\HYDROCODONE BITARTRATE
     Dosage: UNK, PRN/10/325 MILLIGRAM
     Route: 048
     Dates: start: 20180621, end: 20180621
  33. DILAUDID [Concomitant]
     Active Substance: HYDROMORPHONE HYDROCHLORIDE
     Dosage: UNK, PRN
     Route: 042
     Dates: start: 20180621, end: 20180621
  34. LACTATED RINGERS SOLUTION [Concomitant]
     Active Substance: CALCIUM CHLORIDE\POTASSIUM CHLORIDE\SODIUM CHLORIDE\SODIUM LACTATE
     Dosage: UNK, PRN
     Route: 042
     Dates: start: 20180621, end: 20180621
  35. ZYRTEC [Concomitant]
     Active Substance: CETIRIZINE HYDROCHLORIDE
     Indication: HYPERSENSITIVITY
     Dosage: UNK
     Route: 048
  36. DECADRON [Concomitant]
     Active Substance: DEXAMETHASONE
     Dosage: UNK
     Dates: start: 20180723, end: 20190205
  37. LANTUS [Concomitant]
     Active Substance: INSULIN GLARGINE
     Dosage: UNK
     Dates: start: 20180801, end: 20190205
  38. VITAMIN D3 [Concomitant]
     Active Substance: CHOLECALCIFEROL
     Dosage: UNK UNK, QD
  39. BENICAR HCT [Concomitant]
     Active Substance: HYDROCHLOROTHIAZIDE\OLMESARTAN MEDOXOMIL
     Dosage: UNK, QD (TAKE 1 BY MOUTH DAILY)
  40. TYLENOL [Concomitant]
     Active Substance: ACETAMINOPHEN
     Dosage: UNK, ONCE
     Dates: start: 20180621, end: 20180621
  41. DILAUDID [Concomitant]
     Active Substance: HYDROMORPHONE HYDROCHLORIDE
     Dosage: UNK, PRN
     Route: 042
     Dates: start: 20180621, end: 20180621
  42. DEMEROL [Concomitant]
     Active Substance: MEPERIDINE HYDROCHLORIDE
     Dosage: 12.5 MILLIGRAM, PRN
     Route: 042
     Dates: start: 20180621, end: 20180621
  43. VERSED [Concomitant]
     Active Substance: MIDAZOLAM HYDROCHLORIDE
     Dosage: 2, UNK, PRN
     Route: 042
     Dates: start: 20180621, end: 20180621
  44. ZOFRAN [Concomitant]
     Active Substance: ONDANSETRON HYDROCHLORIDE
     Dosage: UNK, PRN
     Route: 042
     Dates: start: 20180621, end: 20180621
  45. PEPCID                             /00305201/ [Concomitant]
     Active Substance: ALUMINUM HYDROXIDE\MAGNESIUM CARBONATE
     Dosage: 20 MILLIGRAM
     Route: 042
  46. DITROPAN [Concomitant]
     Active Substance: OXYBUTYNIN CHLORIDE
     Dosage: UNK (1 TABLET MOUTH DAILY)
     Route: 048
  47. NORCO [Concomitant]
     Active Substance: ACETAMINOPHEN\HYDROCODONE BITARTRATE
     Indication: PAIN
     Dosage: UNK, PRN (1 OR 2 BY MOUTH)
     Route: 048
     Dates: start: 20180621, end: 20181227
  48. PROVENTIL [Concomitant]
     Active Substance: ALBUTEROL
     Dosage: UNK, PRN/ 2.5/0.3MILLIGRAM PER MILLILITRE
     Dates: start: 20180621, end: 20180621
  49. ATROPINE. [Concomitant]
     Active Substance: ATROPINE
     Dosage: UNK
     Route: 042
     Dates: start: 20180621, end: 20180621
  50. BENADRYL [Concomitant]
     Active Substance: DIPHENHYDRAMINE HYDROCHLORIDE
     Dosage: UNK, PRN
     Route: 042
     Dates: start: 20180621, end: 20180621
  51. REGLAN [Concomitant]
     Active Substance: METOCLOPRAMIDE HYDROCHLORIDE
     Dosage: UNK, PRN
     Route: 042
     Dates: start: 20180621, end: 20180621
  52. VERSED [Concomitant]
     Active Substance: MIDAZOLAM HYDROCHLORIDE
     Dosage: 1 MILLIGRAM, PRN
     Route: 042
     Dates: start: 20180621, end: 20180621
  53. NARCAN [Concomitant]
     Active Substance: NALOXONE HYDROCHLORIDE
     Dosage: 0.4 MILLIGRAM, PRN
     Route: 042
     Dates: start: 20180621, end: 20180621
  54. HYZAAR [Concomitant]
     Active Substance: HYDROCHLOROTHIAZIDE\LOSARTAN POTASSIUM
     Dosage: UNK
     Dates: start: 20180717, end: 20190207
  55. MOTRIN [Concomitant]
     Active Substance: IBUPROFEN
     Dosage: 600 MILLIGRAM, PRN
     Dates: start: 20180726, end: 20180726
  56. MYRBETRIQ [Concomitant]
     Active Substance: MIRABEGRON
     Dosage: UNK, QD
     Route: 048
     Dates: start: 20190508, end: 20190903

REACTIONS (1)
  - Breast cancer [Unknown]

NARRATIVE: CASE EVENT DATE: 20180601
